FAERS Safety Report 7680918-7 (Version None)
Quarter: 2011Q3

REPORT INFORMATION
  Report Type: 
  Country: None (occurrence: None)
  Receive Date: 20110812
  Receipt Date: 20110808
  Transmission Date: 20111222
  Serious: Yes (Hospitalization)
  Sender: FDA-Public Use
  Company Number: BR-ABBOTT-09P-020-0572201-00

PATIENT
  Sex: Female
  Weight: 75 kg

DRUGS (9)
  1. DIAZEPAM [Concomitant]
     Indication: NERVOUSNESS
     Route: 048
  2. DIAZEPAM [Concomitant]
     Indication: ANXIETY
  3. ARAVA [Concomitant]
     Indication: ARTHRITIS
     Route: 048
  4. AMITRIPTYLINE HCL [Concomitant]
     Indication: FIBROMYALGIA
     Route: 048
  5. HUMIRA [Suspect]
     Indication: RHEUMATOID ARTHRITIS
     Route: 058
     Dates: start: 20071224, end: 20090701
  6. UNKNOWN MAGISTRAL FORMULA [Concomitant]
     Indication: PRODUCT USED FOR UNKNOWN INDICATION
  7. KETOPROFEN 50MG/ RANITIDINE 300MG/ PREDNISONE 1.5MG [Concomitant]
     Indication: ARTHRITIS
  8. DIOVAN [Concomitant]
     Indication: BLOOD PRESSURE
     Route: 048
  9. HUMIRA [Suspect]
     Route: 058
     Dates: start: 20090401

REACTIONS (7)
  - HERPES VIRUS INFECTION [None]
  - DECREASED IMMUNE RESPONSIVENESS [None]
  - DERMATITIS ALLERGIC [None]
  - SELF-MEDICATION [None]
  - INCORRECT DRUG ADMINISTRATION DURATION [None]
  - KIDNEY INFECTION [None]
  - HERPES ZOSTER [None]
